FAERS Safety Report 7699875-2 (Version None)
Quarter: 2011Q3

REPORT INFORMATION
  Report Type: 
  Country: None (occurrence: None)
  Receive Date: 20110822
  Receipt Date: 20110808
  Transmission Date: 20111222
  Serious: Yes (Other)
  Sender: FDA-Public Use
  Company Number: TW-MYLANLABS-2011S1016503

PATIENT
  Age: 105 Day

DRUGS (2)
  1. FUROSEMIDE [Suspect]
     Indication: BRONCHOPULMONARY DYSPLASIA
     Dosage: DOSAGE NOT STATED
     Route: 065
  2. DEXAMETHASONE [Suspect]
     Indication: BRONCHOPULMONARY DYSPLASIA
     Dosage: DOSAGE NOT STATED
     Route: 065

REACTIONS (1)
  - NEPHROCALCINOSIS [None]
